FAERS Safety Report 6780345-0 (Version None)
Quarter: 2010Q2

REPORT INFORMATION
  Report Type: 
  Country: None (occurrence: None)
  Receive Date: 20100618
  Receipt Date: 20100610
  Transmission Date: 20101027
  Serious: Yes (Other)
  Sender: FDA-Public Use
  Company Number: US-AMGEN-QUU417602

PATIENT
  Sex: Female

DRUGS (8)
  1. ENBREL [Suspect]
     Indication: DRUG USE FOR UNKNOWN INDICATION
     Dates: start: 20090501
  2. ALEVE (CAPLET) [Concomitant]
  3. AMBIEN [Concomitant]
  4. DIAZEPAM [Concomitant]
  5. FOLIC ACID [Concomitant]
  6. HYDROCODONE [Concomitant]
  7. LISINOPRIL [Concomitant]
  8. METHOTREXATE [Concomitant]
     Dates: start: 20080101

REACTIONS (7)
  - BENIGN VAGINAL NEOPLASM [None]
  - CATARACT [None]
  - FIBROMYALGIA [None]
  - INTRAOCULAR PRESSURE INCREASED [None]
  - NAUSEA [None]
  - VISUAL ACUITY REDUCED [None]
  - VOMITING [None]
